FAERS Safety Report 9251860 (Version 1)
Quarter: 2013Q1

REPORT INFORMATION
  Report Type: Spontaneous
  Country: US (occurrence: None)
  Receive Date: 20130305
  Receipt Date: 20130305
  Transmission Date: 20140127
  Serious: Yes (Other)
  Sender: FDA-Public Use
  Company Number: 163-21880-12081969 (0)

PATIENT
  Age: 81 Year
  Sex: Female
  Weight: 38.56 kg

DRUGS (8)
  1. REVLIMID [Suspect]
     Indication: PLASMA CELL MYELOMA
     Route: 048
     Dates: start: 20100413
  2. ASPIRIN (ACETYLSALICYLIC ACID) [Concomitant]
  3. DEXAMETHASONE (DEXAMETHASONE) [Concomitant]
  4. LEVOTHYROXINE (LEVOTHYROXINE) [Concomitant]
  5. LIPITOR (ATORVASTATIN) [Concomitant]
  6. LOSARTAN (LOSARTAN) [Concomitant]
  7. METOPROLOL (METOPROLOL) [Concomitant]
  8. ZETIA (EZETIMIBE) [Concomitant]

REACTIONS (1)
  - Blood potassium decreased [None]
